FAERS Safety Report 25997463 (Version 2)
Quarter: 2025Q4

REPORT INFORMATION
  Report Type: Report from Study
  Country: US (occurrence: US)
  Receive Date: 20251104
  Receipt Date: 20251224
  Transmission Date: 20260118
  Serious: Yes (Other)
  Sender: ABBVIE
  Company Number: US-ABBVIE-6525730

PATIENT
  Age: 71 Year
  Sex: Female

DRUGS (3)
  1. RINVOQ [Suspect]
     Active Substance: UPADACITINIB
     Indication: Product used for unknown indication
     Route: 048
     Dates: start: 20250306
  2. TRAMADOL [Concomitant]
     Active Substance: TRAMADOL
     Indication: Product used for unknown indication
  3. METHOTREXATE [Concomitant]
     Active Substance: METHOTREXATE
     Indication: Product used for unknown indication

REACTIONS (18)
  - Neoplasm malignant [Unknown]
  - Product taste abnormal [Not Recovered/Not Resolved]
  - Vitamin B12 decreased [Not Recovered/Not Resolved]
  - Dry mouth [Unknown]
  - Heart rate increased [Unknown]
  - Oxygen saturation decreased [Unknown]
  - Serum ferritin abnormal [Unknown]
  - Hepatic function abnormal [Unknown]
  - Liver disorder [Unknown]
  - Anaemia [Not Recovered/Not Resolved]
  - Feeling abnormal [Unknown]
  - Taste disorder [Unknown]
  - Sjogren^s syndrome [Unknown]
  - Salivary gland disorder [Unknown]
  - Fatigue [Not Recovered/Not Resolved]
  - Arthralgia [Unknown]
  - Bone pain [Unknown]
  - Oral disorder [Unknown]

NARRATIVE: CASE EVENT DATE: 20250101
